FAERS Safety Report 14003073 (Version 1)
Quarter: 2017Q3

REPORT INFORMATION
  Report Type: Spontaneous
  Country: FR (occurrence: FR)
  Receive Date: 20170922
  Receipt Date: 20170922
  Transmission Date: 20171128
  Serious: Yes (Other)
  Sender: FDA-Public Use
  Company Number: FR-MERCK KGAA-2027435

PATIENT
  Age: 48 Year
  Sex: Female

DRUGS (1)
  1. NOVOTHYROX [Suspect]
     Active Substance: LEVOTHYROXINE SODIUM
     Indication: HYPOTHYROIDISM
     Route: 048
     Dates: start: 201705

REACTIONS (11)
  - Depression [Not Recovered/Not Resolved]
  - Fatigue [Not Recovered/Not Resolved]
  - Limb discomfort [Not Recovered/Not Resolved]
  - Nausea [Not Recovered/Not Resolved]
  - Crying [Not Recovered/Not Resolved]
  - Somnolence [Not Recovered/Not Resolved]
  - Memory impairment [Not Recovered/Not Resolved]
  - Muscle spasms [Not Recovered/Not Resolved]
  - Headache [Not Recovered/Not Resolved]
  - Pain in extremity [Not Recovered/Not Resolved]
  - Hunger [Not Recovered/Not Resolved]

NARRATIVE: CASE EVENT DATE: 201706
